FAERS Safety Report 8922180 (Version 1)
Quarter: 2012Q4

REPORT INFORMATION
  Report Type: Spontaneous
  Country: US (occurrence: None)
  Receive Date: 20121120
  Receipt Date: 20121120
  Transmission Date: 20130627
  Serious: Yes (Other)
  Sender: FDA-Public Use
  Company Number: None

PATIENT
  Age: 61 Year
  Sex: Male
  Weight: 87.09 kg

DRUGS (1)
  1. ETODOLAC [Suspect]
     Indication: ARTHRITIS
     Dates: start: 20121103, end: 20121114

REACTIONS (1)
  - Erythromelalgia [None]
